FAERS Safety Report 24706389 (Version 1)
Quarter: 2024Q4

REPORT INFORMATION
  Report Type: Spontaneous
  Country: US (occurrence: US)
  Receive Date: 20241206
  Receipt Date: 20241206
  Transmission Date: 20250115
  Serious: Yes (Other)
  Sender: FRESENIUS KABI
  Company Number: US-FreseniusKabi-FK202418136

PATIENT
  Age: 59 Year
  Sex: Female

DRUGS (2)
  1. SODIUM CHLORIDE [Suspect]
     Active Substance: SODIUM CHLORIDE
     Indication: Inappropriate antidiuretic hormone secretion
     Dosage: LIQUID FORMULATION 540 MEQ Q8 HR
  2. THERMOTABS [Concomitant]
     Indication: Product used for unknown indication
     Dosage: 3 TABS Q 8 HOURS?DOSAGE FORM: TABLETS?ROA: ORAL

REACTIONS (4)
  - Demyelination [Unknown]
  - Subarachnoid haemorrhage [Unknown]
  - Dose calculation error [Unknown]
  - Accidental overdose [Unknown]
